FAERS Safety Report 9684289 (Version 1)
Quarter: 2013Q4

REPORT INFORMATION
  Report Type: Spontaneous
  Country: US (occurrence: US)
  Receive Date: 20131112
  Receipt Date: 20131112
  Transmission Date: 20140711
  Serious: Yes (Other)
  Sender: FDA-Public Use
  Company Number: US-BRISTOL-MYERS SQUIBB COMPANY-19786243

PATIENT
  Sex: Female

DRUGS (4)
  1. MITOTANE [Suspect]
     Indication: ADRENOCORTICAL CARCINOMA
     Dates: start: 201301
  2. NEXIUM [Concomitant]
  3. ZOFRAN [Concomitant]
  4. LEVOTHYROXINE [Concomitant]

REACTIONS (3)
  - Duodenal ulcer [Not Recovered/Not Resolved]
  - Gastritis [Not Recovered/Not Resolved]
  - Dyspepsia [Not Recovered/Not Resolved]
